FAERS Safety Report 15678871 (Version 1)
Quarter: 2018Q4

REPORT INFORMATION
  Report Type: Report from Study
  Country: JP (occurrence: JP)
  Receive Date: 20181202
  Receipt Date: 20181202
  Transmission Date: 20190205
  Serious: Yes (Hospitalization, Other)
  Sender: FDA-Public Use
  Company Number: JP-TAKEDA-2017TJP013810

PATIENT
  Age: 79 Year
  Sex: Male
  Weight: 62 kg

DRUGS (6)
  1. ACICLOVIR [Concomitant]
     Active Substance: ACYCLOVIR
     Indication: PROPHYLAXIS
     Dosage: UNK
     Route: 065
  2. IXAZOMIB [Suspect]
     Active Substance: IXAZOMIB
     Indication: PLASMA CELL MYELOMA
     Dosage: 3 MG, 1/WEEK
     Route: 048
     Dates: start: 20170620, end: 20170627
  3. LENALIDOMIDE [Suspect]
     Active Substance: LENALIDOMIDE
     Indication: PLASMA CELL MYELOMA
     Dosage: 15 MG, QD
     Route: 048
     Dates: start: 20170620, end: 20170628
  4. DEXAMETHASONE. [Suspect]
     Active Substance: DEXAMETHASONE
     Indication: PLASMA CELL MYELOMA
     Dosage: 20 MG, 1/WEEK
     Route: 048
     Dates: start: 20170620, end: 20170627
  5. DEXAMETHASONE. [Suspect]
     Active Substance: DEXAMETHASONE
     Dosage: 20 MG, 1/WEEK
     Route: 048
     Dates: start: 20170803, end: 20170803
  6. IXAZOMIB [Suspect]
     Active Substance: IXAZOMIB
     Dosage: 4 MG, 1/WEEK
     Route: 048
     Dates: start: 20170803, end: 20170803

REACTIONS (6)
  - Diarrhoea [Recovered/Resolved]
  - Pneumonia [Recovered/Resolved]
  - Pseudomembranous colitis [Recovered/Resolved]
  - Thrombocytopenia [Recovered/Resolved]
  - Neuropathy peripheral [Not Recovered/Not Resolved]
  - Thrombocytopenia [Recovered/Resolved]

NARRATIVE: CASE EVENT DATE: 20170626
